FAERS Safety Report 20537094 (Version 1)
Quarter: 2022Q1

REPORT INFORMATION
  Report Type: Spontaneous
  Country: FR (occurrence: FR)
  Receive Date: 20220302
  Receipt Date: 20220302
  Transmission Date: 20220423
  Serious: Yes (Other)
  Sender: FDA-Public Use
  Company Number: None

PATIENT
  Age: 6 Year
  Sex: Female
  Weight: 15.7 kg

DRUGS (1)
  1. MOZOBIL [Suspect]
     Active Substance: PLERIXAFOR
     Indication: Cytapheresis
     Dosage: 0.5 MG/KG, QD
     Route: 058
     Dates: start: 20220110, end: 20220113

REACTIONS (1)
  - Hallucination [Recovered/Resolved]

NARRATIVE: CASE EVENT DATE: 20220101
